FAERS Safety Report 9341405 (Version 1)
Quarter: 2013Q2

REPORT INFORMATION
  Report Type: Spontaneous
  Country: US (occurrence: US)
  Receive Date: 20130611
  Receipt Date: 20130611
  Transmission Date: 20140414
  Serious: Yes (Hospitalization)
  Sender: FDA-Public Use
  Company Number: US-SANOFI-AVENTIS-2013SA057649

PATIENT
  Sex: Female

DRUGS (2)
  1. LANTUS SOLOSTAR [Suspect]
     Dosage: THERAPY START DATE - ONE WEEK. DOSE:28 UNIT(S)
     Route: 051
  2. SOLOSTAR [Suspect]
     Dosage: THERAPY START DATE - ONE WEEK.

REACTIONS (2)
  - Dizziness [Unknown]
  - Nausea [Unknown]
